FAERS Safety Report 9638879 (Version 1)
Quarter: 2013Q4

REPORT INFORMATION
  Report Type: Spontaneous
  Country: US (occurrence: US)
  Receive Date: 20131022
  Receipt Date: 20131022
  Transmission Date: 20140711
  Serious: No
  Sender: FDA-Public Use
  Company Number: US-BRISTOL-MYERS SQUIBB COMPANY-19124338

PATIENT
  Age: 67 Year
  Sex: Female
  Weight: 71.2 kg

DRUGS (6)
  1. ELIQUIS [Suspect]
     Indication: ATRIAL FIBRILLATION
     Dates: start: 2013
  2. DIGOXIN [Concomitant]
  3. METOPROLOL [Concomitant]
  4. PROPOFOL [Concomitant]
  5. POTASSIUM CHLORIDE [Concomitant]
  6. PRAVASTATIN SODIUM [Concomitant]

REACTIONS (1)
  - Contusion [Unknown]
